FAERS Safety Report 5627453-5 (Version None)
Quarter: 2008Q1

REPORT INFORMATION
  Report Type: 
  Country: None (occurrence: None)
  Receive Date: 20080214
  Receipt Date: 20080214
  Transmission Date: 20080703
  Serious: Yes (Death)
  Sender: FDA-Public Use
  Company Number: None

PATIENT
  Age: 13 Year
  Sex: Female
  Weight: 45.3597 kg

DRUGS (1)
  1. BOTOX [Suspect]
     Indication: MUSCLE SPASTICITY
     Dosage: PROBABLY 5+

REACTIONS (5)
  - DYSPNOEA [None]
  - IMPAIRED GASTRIC EMPTYING [None]
  - MUSCLE ATROPHY [None]
  - NERVOUS SYSTEM DISORDER [None]
  - SPEECH DISORDER [None]
